FAERS Safety Report 15593666 (Version 2)
Quarter: 2018Q4

REPORT INFORMATION
  Report Type: Spontaneous
  Country: BR (occurrence: BR)
  Receive Date: 20181106
  Receipt Date: 20181109
  Transmission Date: 20190205
  Serious: No
  Sender: FDA-Public Use
  Company Number: BR-009507513-1811BRA001995

PATIENT
  Sex: Female
  Weight: 69 kg

DRUGS (5)
  1. SYNTHROID [Concomitant]
     Active Substance: LEVOTHYROXINE SODIUM
     Indication: AUTOIMMUNE THYROIDITIS
     Dosage: 38MCG,TABLET DAILY IN FASTING CONDITION
     Route: 048
  2. 1,4-ANDROSTADIENE-3,17-DIONE [Concomitant]
     Indication: BLOOD CALCIUM DECREASED
     Dosage: UNK UNK, BIW
  3. JANUVIA [Suspect]
     Active Substance: SITAGLIPTIN PHOSPHATE
     Indication: BLOOD GLUCOSE ABNORMAL
     Dosage: 25 MILLIGRAM
     Route: 048
  4. ACTONEL [Concomitant]
     Active Substance: RISEDRONATE SODIUM
     Indication: OSTEOPENIA
     Dosage: 15 MG, 1 TABLETL PER MONTH
     Route: 048
     Dates: start: 2008
  5. ROSUCOR [Concomitant]
     Active Substance: ROSUVASTATIN CALCIUM
     Indication: BLOOD CHOLESTEROL ABNORMAL
     Dosage: 10 MG, 1 TABLET  DAILY AT NIGHT
     Route: 048
     Dates: start: 2016

REACTIONS (1)
  - Product dose omission [Unknown]
